FAERS Safety Report 4361215-4 (Version None)
Quarter: 2004Q2

REPORT INFORMATION
  Report Type: 
  Country: None (occurrence: None)
  Receive Date: 20040514
  Receipt Date: 20030711
  Transmission Date: 20050107
  Serious: Yes (Other)
  Sender: FDA-Public Use
  Company Number: 03-187-0084

PATIENT
  Age: 75 Year
  Sex: Male

DRUGS (1)
  1. MITOMYCIN [Suspect]
     Indication: BLADDER CANCER
     Dosage: INTRAVESICAL X 1
     Route: 043
     Dates: start: 20030601

REACTIONS (2)
  - ERYTHEMA [None]
  - PRURITUS [None]
